FAERS Safety Report 19027220 (Version 2)
Quarter: 2021Q1

REPORT INFORMATION
  Report Type: Spontaneous
  Country: US (occurrence: US)
  Receive Date: 20210318
  Receipt Date: 20210322
  Transmission Date: 20210420
  Serious: Yes (Life-Threatening, Hospitalization, Other)
  Sender: FDA-Public Use
  Company Number: US-PFIZER INC-2021290808

PATIENT
  Age: 11 Month
  Sex: Male

DRUGS (2)
  1. FENTANYL CITRATE. [Suspect]
     Active Substance: FENTANYL CITRATE
     Dosage: UNK
  2. TRAMADOL. [Suspect]
     Active Substance: TRAMADOL
     Dosage: UNK

REACTIONS (3)
  - Unresponsive to stimuli [Unknown]
  - Toxicity to various agents [Unknown]
  - Accidental exposure to product by child [Unknown]
